FAERS Safety Report 22336957 (Version 1)
Quarter: 2023Q2

REPORT INFORMATION
  Report Type: Spontaneous
  Country: JP (occurrence: None)
  Receive Date: 20230518
  Receipt Date: 20230518
  Transmission Date: 20230722
  Serious: Yes (Hospitalization)
  Sender: FDA-Public Use
  Company Number: 2023A112067

PATIENT

DRUGS (2)
  1. CALQUENCE [Suspect]
     Active Substance: ACALABRUTINIB
     Route: 048
     Dates: start: 202304
  2. GAZYVA [Concomitant]
     Active Substance: OBINUTUZUMAB
     Dosage: DOSE UNKNOWN
     Route: 065

REACTIONS (1)
  - Injection related reaction [Recovering/Resolving]

NARRATIVE: CASE EVENT DATE: 20230510
